FAERS Safety Report 4348041-7 (Version None)
Quarter: 2004Q2

REPORT INFORMATION
  Report Type: 
  Country: None (occurrence: None)
  Receive Date: 20040422
  Receipt Date: 20040413
  Transmission Date: 20050107
  Serious: Yes (Disabling)
  Sender: FDA-Public Use
  Company Number: 2004-114954-NL

PATIENT
  Age: 90 Year
  Sex: Male

DRUGS (8)
  1. MIRTAZAPINE [Suspect]
     Indication: DEPRESSION
     Dosage: 30 MG QD ORAL
     Route: 048
     Dates: start: 20031030, end: 20040316
  2. SERETIDE [Concomitant]
  3. PERINDOPRIL [Concomitant]
  4. ACETYLSALICYLIC ACID SRT [Concomitant]
  5. TIOTROPIUM BROMIDE [Concomitant]
  6. TAMSULOSIN HYDROCHLORIDE [Concomitant]
  7. FUROSEMIDE [Concomitant]
  8. ALBUTEROL SULFATE [Concomitant]

REACTIONS (1)
  - NEUROPATHY PERIPHERAL [None]
